FAERS Safety Report 5225953-3 (Version None)
Quarter: 2007Q1

REPORT INFORMATION
  Report Type: 
  Country: None (occurrence: None)
  Receive Date: 20070201
  Receipt Date: 20070124
  Transmission Date: 20070707
  Serious: Yes (Death)
  Sender: FDA-Public Use
  Company Number: US-JNJFOC-20061203253

PATIENT
  Sex: Female
  Weight: 69.63 kg

DRUGS (6)
  1. REMICADE [Suspect]
     Route: 042
  2. REMICADE [Suspect]
     Indication: RHEUMATOID ARTHRITIS
     Route: 042
  3. METHOTREXATE [Concomitant]
     Route: 048
  4. MOBIC [Concomitant]
  5. FOLIC ACID [Concomitant]
  6. FLEXERIL [Concomitant]
     Dosage: AT NIGHT

REACTIONS (1)
  - ARTERIOSCLEROSIS [None]
